FAERS Safety Report 15404879 (Version 1)
Quarter: 2018Q3

REPORT INFORMATION
  Report Type: Report from Study
  Country: CA (occurrence: CA)
  Receive Date: 20180920
  Receipt Date: 20180920
  Transmission Date: 20181010
  Serious: Yes (Hospitalization)
  Sender: FDA-Public Use
  Company Number: CA-ROCHE-2186825

PATIENT
  Sex: Male

DRUGS (11)
  1. DIPHENHYDRAMINE. [Concomitant]
     Active Substance: DIPHENHYDRAMINE
     Indication: PREMEDICATION
     Route: 048
     Dates: start: 20091207
  2. RITUXAN [Suspect]
     Active Substance: RITUXIMAB
     Indication: HYPERSENSITIVITY VASCULITIS
  3. PREDNISONE. [Concomitant]
     Active Substance: PREDNISONE
  4. ACETAMINOPHEN. [Concomitant]
     Active Substance: ACETAMINOPHEN
     Indication: PREMEDICATION
     Route: 048
     Dates: start: 20091207
  5. RITUXAN [Suspect]
     Active Substance: RITUXIMAB
     Indication: MONOCLONAL GAMMOPATHY
  6. LYRICA [Concomitant]
     Active Substance: PREGABALIN
  7. RITUXAN [Suspect]
     Active Substance: RITUXIMAB
     Indication: VASCULITIS
     Dosage: DAY 1, 15?DATE OF PREVIOUS RITUXAN INFUSION: 19/OCT/2017
     Route: 042
     Dates: start: 20090327
  8. COVERSYL [Concomitant]
     Active Substance: PERINDOPRIL
     Indication: BLOOD PRESSURE MEASUREMENT
  9. METHYLPREDNISOLONE. [Concomitant]
     Active Substance: METHYLPREDNISOLONE
     Indication: PREMEDICATION
     Route: 042
     Dates: start: 20091207
  10. RITUXAN [Suspect]
     Active Substance: RITUXIMAB
     Indication: MONONEUROPATHY MULTIPLEX
  11. NEXIUM [Concomitant]
     Active Substance: ESOMEPRAZOLE MAGNESIUM

REACTIONS (1)
  - Blood count abnormal [Unknown]

NARRATIVE: CASE EVENT DATE: 2018
